FAERS Safety Report 20685417 (Version 1)
Quarter: 2022Q2

REPORT INFORMATION
  Report Type: Spontaneous
  Country: US (occurrence: US)
  Receive Date: 20220407
  Receipt Date: 20220407
  Transmission Date: 20220721
  Serious: No
  Sender: FDA-Public Use
  Company Number: US-PFIZER INC-202101211618

PATIENT
  Age: 69 Year
  Sex: Female

DRUGS (2)
  1. SUTENT [Suspect]
     Active Substance: SUNITINIB MALATE
     Dosage: 37.5 MG
  2. SUTENT [Suspect]
     Active Substance: SUNITINIB MALATE
     Dosage: 25 MG, 1X/DAY (25 MG QTY: 30 DAYS SUPPLY: 30 DIRECTIONS: 1 CAP(S) ORALLY ONCE A DAY X 30 DAYS)
     Route: 048

REACTIONS (3)
  - Product dose omission issue [Unknown]
  - Fatigue [Unknown]
  - Asthenia [Unknown]
